FAERS Safety Report 24121409 (Version 3)
Quarter: 2025Q3

REPORT INFORMATION
  Report Type: Report from Study
  Country: US (occurrence: US)
  Receive Date: 20240722
  Receipt Date: 20250816
  Transmission Date: 20251020
  Serious: No
  Sender: ALEXION PHARMACEUTICALS
  Company Number: US-AstraZeneca-CH-00665848A

PATIENT

DRUGS (1)
  1. ULTOMIRIS [Suspect]
     Active Substance: RAVULIZUMAB-CWVZ
     Route: 065

REACTIONS (7)
  - Dysphagia [Unknown]
  - Oral disorder [Unknown]
  - Mastication disorder [Unknown]
  - Dysarthria [Unknown]
  - Asthenia [Unknown]
  - Tremor [Unknown]
  - Arthralgia [Unknown]
